FAERS Safety Report 8244419-X (Version None)
Quarter: 2012Q1

REPORT INFORMATION
  Report Type: 
  Country: None (occurrence: None)
  Receive Date: 20120329
  Receipt Date: 20120326
  Transmission Date: 20120608
  Serious: Yes (Life-Threatening, Hospitalization, Other)
  Sender: FDA-Public Use
  Company Number: FR-ELI_LILLY_AND_COMPANY-FR201203007202

PATIENT
  Sex: Male

DRUGS (7)
  1. RAMIPRIL [Concomitant]
     Dosage: 2.5 MG, UNK
  2. COUMADIN [Concomitant]
     Indication: THROMBOSIS
     Dosage: 5 MG, QD
     Dates: start: 20120119, end: 20120210
  3. ASPIRIN [Concomitant]
     Indication: STENT PLACEMENT
     Dosage: 75 MG, QD
     Dates: start: 20120110, end: 20120210
  4. EFFIENT [Suspect]
     Indication: STENT PLACEMENT
     Dosage: 10 MG, QD
     Route: 048
     Dates: start: 20120101, end: 20120210
  5. BISOPROLOL FUMARATE [Concomitant]
     Dosage: 5 MG, UNK
  6. ATORVASTATIN [Concomitant]
     Dosage: 80 MG, QD
     Dates: end: 20120210
  7. ARESTAL [Concomitant]
     Dosage: 1 MG, PRN
     Dates: end: 20120210

REACTIONS (6)
  - BLOOD PRESSURE SYSTOLIC INCREASED [None]
  - LUNG DISORDER [None]
  - HEMIPARESIS [None]
  - HAEMORRHAGE INTRACRANIAL [None]
  - ACIDOSIS HYPERCHLORAEMIC [None]
  - PNEUMONIA STAPHYLOCOCCAL [None]
